FAERS Safety Report 8618300-8 (Version None)
Quarter: 2012Q3

REPORT INFORMATION
  Report Type: 
  Country: None (occurrence: None)
  Receive Date: 20120824
  Receipt Date: 20120816
  Transmission Date: 20120928
  Serious: Yes (Other)
  Sender: FDA-Public Use
  Company Number: US-BIOGENIDEC-2012BI032002

PATIENT
  Age: 26 Year
  Sex: Female

DRUGS (1)
  1. AVONEX [Suspect]
     Indication: MULTIPLE SCLEROSIS
     Route: 030
     Dates: start: 20010124, end: 20020120

REACTIONS (17)
  - DIZZINESS [None]
  - ABDOMINAL DISCOMFORT [None]
  - ASTHENIA [None]
  - MULTIPLE SCLEROSIS RELAPSE [None]
  - FALL [None]
  - CHILLS [None]
  - PYREXIA [None]
  - TEMPERATURE INTOLERANCE [None]
  - HYPOAESTHESIA [None]
  - GENERAL SYMPTOM [None]
  - ANXIETY [None]
  - SENSORY DISTURBANCE [None]
  - HOT FLUSH [None]
  - ACTIVITIES OF DAILY LIVING IMPAIRED [None]
  - MENORRHAGIA [None]
  - DIARRHOEA [None]
  - HEADACHE [None]
